FAERS Safety Report 7760476-9 (Version None)
Quarter: 2011Q3

REPORT INFORMATION
  Report Type: 
  Country: None (occurrence: None)
  Receive Date: 20110919
  Receipt Date: 20110906
  Transmission Date: 20111222
  Serious: Yes (Hospitalization)
  Sender: FDA-Public Use
  Company Number: US-MYLANLABS-2011S1019045

PATIENT
  Age: 64 Year
  Sex: Male
  Weight: 95 kg

DRUGS (15)
  1. DILTIAZEM [Suspect]
     Route: 048
  2. AMOXICILLIN [Concomitant]
     Route: 048
  3. ASPIRIN [Concomitant]
     Dosage: 81MG DAILY
     Route: 048
  4. DILTIAZEM [Suspect]
     Route: 048
  5. MOMETASONE FUROATE [Concomitant]
     Dosage: EVENING
     Route: 055
  6. FUROSEMIDE [Concomitant]
     Dosage: INITIALLY 40MG TWICE DAILY; 20MG DAILY ON ADR ONSET
     Route: 048
  7. METFORMIN HCL [Concomitant]
     Route: 048
  8. CLARITHROMYCIN [Concomitant]
     Route: 048
  9. GLIPIZIDE [Concomitant]
     Route: 048
  10. DILTIAZEM [Suspect]
     Indication: HEART RATE INCREASED
     Route: 048
  11. SODIUM DIOCTYL SULFOSUCCINATE [Concomitant]
     Dosage: 250MG DAILY
     Route: 048
  12. PRAVASTATIN [Concomitant]
     Dosage: EVENING
     Route: 048
  13. OMEPRAZOLE [Concomitant]
     Route: 048
  14. DIGOXIN [Concomitant]
     Indication: HEART RATE INCREASED
     Route: 048
  15. IPRATROPIUM BROMIDE [Concomitant]
     Route: 055

REACTIONS (1)
  - ILEUS PARALYTIC [None]
